FAERS Safety Report 5157723-9 (Version None)
Quarter: 2006Q4

REPORT INFORMATION
  Report Type: 
  Country: None (occurrence: None)
  Receive Date: 20061127
  Receipt Date: 20061114
  Transmission Date: 20070319
  Serious: Yes (Other)
  Sender: FDA-Public Use
  Company Number: US-ROCHE-471484

PATIENT
  Age: 58 Year
  Sex: Female
  Weight: 59 kg

DRUGS (8)
  1. TAMIFLU [Suspect]
     Route: 048
     Dates: start: 20051220, end: 20051223
  2. SYNTHROID [Concomitant]
     Indication: HYPOTHYROIDISM
     Route: 048
  3. ESTRATEST [Concomitant]
     Indication: HORMONE THERAPY
     Route: 048
  4. SINGULAIR [Concomitant]
     Indication: ASTHMA
     Dosage: ROUT REPORTED AS ^INH^.
     Route: 050
  5. VITAMIN E [Concomitant]
     Route: 048
  6. FISH OIL [Concomitant]
     Route: 048
  7. UNSPECIFIED DRUG [Concomitant]
     Indication: ASTHMA
     Dosage: DRUG REPORTED AS ^INHALERS NOS^. ROUTE REPORTED AS ^INH^.
     Route: 050
  8. ANTIBIOTIC NOS [Concomitant]
     Route: 048
     Dates: start: 20051215

REACTIONS (5)
  - ANXIETY [None]
  - DEHYDRATION [None]
  - DYSPNOEA [None]
  - HALLUCINATION [None]
  - INSOMNIA [None]
